FAERS Safety Report 9789905 (Version 1)
Quarter: 2013Q4

REPORT INFORMATION
  Report Type: Spontaneous
  Country: US (occurrence: None)
  Receive Date: 20131227
  Receipt Date: 20131227
  Transmission Date: 20140711
  Serious: Yes (Hospitalization, Other)
  Sender: FDA-Public Use
  Company Number: 2009S1006138

PATIENT
  Age: 48 Year
  Sex: Female

DRUGS (11)
  1. FLEET PHOSPHO-SODA [Suspect]
     Indication: HYSTERECTOMY
     Route: 048
     Dates: start: 20070312, end: 20070312
  2. FLEET PHOSPHO-SODA [Suspect]
     Indication: ABDOMINAL PANNICULECTOMY
     Route: 048
     Dates: start: 20070312, end: 20070312
  3. ATACAND HCT (HYDROCHLOROTHIAZIDE, CANDESARTAN CILEXETIL) [Concomitant]
  4. LASIX (FUROSEMIDE) [Concomitant]
  5. CAPTOPRIL (CAPTOPRIL) [Concomitant]
  6. ULTRAM (TRAMADOL HYDROCHLORIDE) [Concomitant]
  7. NEURONTIN (GABAPENTIN) [Concomitant]
  8. METANX (PYRIDOXINE HYDROCHLORIDE, CALCIUM MEFOLINATE, VITAMIN B12 NOS) [Concomitant]
  9. LANTUS (INSULIN GLARGINE) [Concomitant]
  10. HUMALOG (INSULIN LISPRO) [Concomitant]
  11. VERAPAMIL (VERAPAMIL HYOCHLORIDE) [Concomitant]

REACTIONS (12)
  - Chest pain [None]
  - Hyperglycaemia [None]
  - Hypertension [None]
  - Haemorrhagic anaemia [None]
  - Renal failure acute [None]
  - Post procedural complication [None]
  - Localised intraabdominal fluid collection [None]
  - Renal failure chronic [None]
  - Postoperative wound infection [None]
  - Dialysis [None]
  - Nephropathy [None]
  - Tubulointerstitial nephritis [None]
